FAERS Safety Report 17354357 (Version 1)
Quarter: 2020Q1

REPORT INFORMATION
  Report Type: Spontaneous
  Country: US (occurrence: US)
  Receive Date: 20200116
  Receipt Date: 20200116
  Transmission Date: 20200409
  Serious: No
  Sender: FDA-Public Use
  Company Number: None

PATIENT
  Age: 56 Year
  Sex: Female

DRUGS (1)
  1. AFINITOR [Suspect]
     Active Substance: EVEROLIMUS
     Route: 048
     Dates: start: 201905

REACTIONS (5)
  - Pruritus [None]
  - Headache [None]
  - Eyelid ptosis [None]
  - Diplopia [None]
  - Inflammation [None]

NARRATIVE: CASE EVENT DATE: 20200116
